FAERS Safety Report 20171668 (Version 2)
Quarter: 2022Q1

REPORT INFORMATION
  Report Type: Spontaneous
  Country: JP (occurrence: JP)
  Receive Date: 20211210
  Receipt Date: 20220107
  Transmission Date: 20220423
  Serious: Yes (Other)
  Sender: FDA-Public Use
  Company Number: JP-LUPIN PHARMACEUTICALS INC.-2021-23889

PATIENT
  Sex: Male

DRUGS (8)
  1. POTASSIUM [Suspect]
     Active Substance: POTASSIUM
     Indication: Basedow^s disease
     Dosage: 100 MILLIGRAM, QD (INITIATED IN 4 GESTATION WEEK)
     Route: 064
  2. POTASSIUM [Suspect]
     Active Substance: POTASSIUM
     Dosage: 150 MILLIGRAM, QD, INITIATED IN 16 GESTATION WEEK
     Route: 064
  3. POTASSIUM [Suspect]
     Active Substance: POTASSIUM
     Dosage: 50 MILLIGRAM, QD, 50 MILLIGRAM, QD, AT 24 GESTATION WEEK
     Route: 064
  4. POTASSIUM [Suspect]
     Active Substance: POTASSIUM
     Dosage: 200 MILLIGRAM, QD, AT 29 GESTATION WEEK
     Route: 064
  5. LEVOTHYROXINE [Suspect]
     Active Substance: LEVOTHYROXINE
     Indication: Thyroxine therapy
     Dosage: 50 MICROGRAM, QD
     Route: 064
  6. METHIMAZOLE [Suspect]
     Active Substance: METHIMAZOLE
     Indication: Basedow^s disease
     Dosage: 25 MILLIGRAM, QD, TILL 4 GESTATION WEEK
     Route: 064
  7. METHIMAZOLE [Suspect]
     Active Substance: METHIMAZOLE
     Dosage: 15 MILLIGRAM, QD, INITIATED IN 16 GESTATION WEEK
     Route: 064
  8. METHIMAZOLE [Suspect]
     Active Substance: METHIMAZOLE
     Dosage: 30 MILLIGRAM, QD, AT 29 GW
     Route: 064

REACTIONS (4)
  - Hyperthyroidism [Unknown]
  - Goitre [Unknown]
  - Premature baby [Unknown]
  - Foetal exposure during pregnancy [Unknown]
